FAERS Safety Report 21206950 (Version 1)
Quarter: 2022Q3

REPORT INFORMATION
  Report Type: Spontaneous
  Country: DK (occurrence: DK)
  Receive Date: 20220812
  Receipt Date: 20220812
  Transmission Date: 20221027
  Serious: Yes (Other)
  Sender: FDA-Public Use
  Company Number: DK-FreseniusKabi-FK202210356

PATIENT
  Age: 49 Year
  Sex: Female

DRUGS (12)
  1. CYTARABINE [Suspect]
     Active Substance: CYTARABINE
     Indication: Acute myeloid leukaemia
     Dosage: UNK
  2. IDARUBICIN HYDROCHLORIDE [Suspect]
     Active Substance: IDARUBICIN HYDROCHLORIDE
     Indication: Acute myeloid leukaemia
     Dosage: FLAG-IDA
  3. GEMTUZUMAB OZOGAMICIN [Suspect]
     Active Substance: GEMTUZUMAB OZOGAMICIN
     Indication: Acute myeloid leukaemia
     Dosage: 5 MG AS A SINGLE FLAT DOSE
  4. GRANULOCYTE COLONY-STIMULATING FACTOR NOS [Suspect]
     Active Substance: GRANULOCYTE COLONY-STIMULATING FACTOR NOS
     Indication: Acute myeloid leukaemia
  5. FLUDARABINE [Suspect]
     Active Substance: FLUDARABINE PHOSPHATE
     Indication: Acute myeloid leukaemia
  6. POSACONAZOLE [Concomitant]
     Active Substance: POSACONAZOLE
     Indication: Antifungal prophylaxis
     Dosage: 300 MG
  7. AMPHOTERICIN B [Concomitant]
     Active Substance: AMPHOTERICIN B
     Indication: Antifungal treatment
     Dosage: 5 MG/KG, DAILY (SYSTEMIC/INTRAVENOUS)
  8. AMPHOTERICIN B [Concomitant]
     Active Substance: AMPHOTERICIN B
     Dosage: 3 MG/KG, DAILY (SYSTEMIC/INTRAVENOUS)
     Route: 042
  9. AMPHOTERICIN B [Concomitant]
     Active Substance: AMPHOTERICIN B
     Dosage: 2.5 MG/KG (SYSTEMIC/INTRAVENOUS)
     Route: 042
  10. VORICONAZOLE [Concomitant]
     Active Substance: VORICONAZOLE
     Indication: Antifungal treatment
     Dosage: 200 MG, 2X/DAY
     Route: 042
  11. VORICONAZOLE [Concomitant]
     Active Substance: VORICONAZOLE
     Dosage: 400 MG, 2X/DAY
     Route: 042
  12. TERBINAFINE [Concomitant]
     Active Substance: TERBINAFINE
     Indication: Antifungal treatment
     Route: 042

REACTIONS (8)
  - Neutropenia [Recovered/Resolved]
  - Pyrexia [Unknown]
  - Oropharyngeal pain [Unknown]
  - Sinus pain [Unknown]
  - Amnesia [Unknown]
  - Metabolic acidosis [Unknown]
  - Headache [Not Recovered/Not Resolved]
  - Confusional state [Not Recovered/Not Resolved]
